FAERS Safety Report 7142505-9 (Version None)
Quarter: 2010Q4

REPORT INFORMATION
  Report Type: 
  Country: None (occurrence: None)
  Receive Date: 20101207
  Receipt Date: 20101206
  Transmission Date: 20110411
  Serious: Yes (Life-Threatening, Other)
  Sender: FDA-Public Use
  Company Number: US-PURDUE-USA-2010-0056270

PATIENT
  Age: 47 Year
  Sex: Male

DRUGS (1)
  1. TRAMADOL HCL [Suspect]
     Indication: PRODUCT USED FOR UNKNOWN INDICATION

REACTIONS (8)
  - BRUGADA SYNDROME [None]
  - CORONARY ARTERY DISEASE [None]
  - ELECTROCARDIOGRAM ABNORMAL [None]
  - HYPOVENTILATION [None]
  - MENTAL STATUS CHANGES [None]
  - OVERDOSE [None]
  - SINUS TACHYCARDIA [None]
  - UNRESPONSIVE TO STIMULI [None]
